FAERS Safety Report 14527769 (Version 1)
Quarter: 2018Q1

REPORT INFORMATION
  Report Type: Report from Study
  Country: US (occurrence: US)
  Receive Date: 20180213
  Receipt Date: 20180213
  Transmission Date: 20180509
  Serious: Yes (Other)
  Sender: FDA-Public Use
  Company Number: US-ACTELION-A-US2018-167290

PATIENT
  Age: 67 Year
  Sex: Male

DRUGS (2)
  1. VALCHLOR [Suspect]
     Active Substance: MECHLORETHAMINE
     Indication: MYCOSIS FUNGOIDES
     Dosage: THIN FILM TO AFFECTED SKIN, QD
     Route: 061
  2. VALCHLOR [Suspect]
     Active Substance: MECHLORETHAMINE
     Dosage: UNK, QOD
     Route: 061

REACTIONS (4)
  - Micrographic skin surgery [Unknown]
  - Application site irritation [Recovering/Resolving]
  - Application site pruritus [Recovering/Resolving]
  - Application site erythema [Recovering/Resolving]
